FAERS Safety Report 23969681 (Version 1)
Quarter: 2024Q2

REPORT INFORMATION
  Report Type: Report from Study
  Country: US (occurrence: US)
  Receive Date: 20240613
  Receipt Date: 20240613
  Transmission Date: 20240715
  Serious: Yes (Hospitalization, Other)
  Sender: FDA-Public Use
  Company Number: US-JAZZ PHARMACEUTICALS-2023-US-012706

PATIENT
  Sex: Female

DRUGS (5)
  1. EPIDIOLEX [Suspect]
     Active Substance: CANNABIDIOL
     Indication: Partial seizures
     Dosage: 0.7ML BY MOUTH BID FOR 7 DAYS, THEN INCREASE TO 1.4ML BID THEREAFTER
     Route: 048
  2. FLOVENT HFA [Concomitant]
     Active Substance: FLUTICASONE PROPIONATE
  3. MIRALAX [Concomitant]
     Active Substance: POLYETHYLENE GLYCOL 3350
  4. TRILEPTAL [Concomitant]
     Active Substance: OXCARBAZEPINE
  5. VALTOCO [Concomitant]
     Active Substance: DIAZEPAM

REACTIONS (11)
  - Seizure [Unknown]
  - Seizure [Unknown]
  - Diarrhoea [Unknown]
  - Abdominal pain upper [Unknown]
  - Fatigue [Unknown]
  - Hyperhidrosis [Unknown]
  - Pruritus [Unknown]
  - Tongue erythema [Unknown]
  - Rash [Unknown]
  - Product dose omission issue [Unknown]
  - Off label use [Unknown]
